FAERS Safety Report 24030577 (Version 1)
Quarter: 2024Q2

REPORT INFORMATION
  Report Type: Spontaneous
  Country: US (occurrence: US)
  Receive Date: 20240628
  Receipt Date: 20240628
  Transmission Date: 20240717
  Serious: Yes (Other)
  Sender: FDA-Public Use
  Company Number: US-RADIUS HEALTH, INC.-2024US004477

PATIENT
  Sex: Female

DRUGS (1)
  1. TYMLOS [Suspect]
     Active Substance: ABALOPARATIDE
     Indication: Osteoporosis
     Dosage: 80 MICROGRAM, QD
     Route: 058

REACTIONS (7)
  - Mass [Unknown]
  - Pain in jaw [Unknown]
  - Toothache [Unknown]
  - Mastication disorder [Unknown]
  - Neck pain [Unknown]
  - Mouth swelling [Unknown]
  - Oral discomfort [Unknown]
